FAERS Safety Report 5382755-5 (Version None)
Quarter: 2007Q3

REPORT INFORMATION
  Report Type: 
  Country: None (occurrence: None)
  Receive Date: 20070710
  Receipt Date: 20070705
  Transmission Date: 20080115
  Serious: Yes (Other)
  Sender: FDA-Public Use
  Company Number: US-PURDUE-USA_2007_0028151

PATIENT
  Age: 30 Year
  Sex: Female
  Weight: 81 kg

DRUGS (9)
  1. OXYCONTIN [Suspect]
     Indication: BACK PAIN
     Dosage: 40 MG, BID
     Route: 048
     Dates: end: 20070501
  2. OXYCONTIN [Suspect]
     Dosage: UNK, UNK
     Route: 048
     Dates: start: 20070601
  3. OPANA [Suspect]
     Indication: BREAKTHROUGH PAIN
     Dosage: 5 MG, TID PRN
     Route: 048
     Dates: start: 20070501, end: 20070501
  4. OPANA ER [Suspect]
     Indication: BACK PAIN
     Dosage: 40 MG, SEE TEXT
     Route: 048
     Dates: start: 20070501, end: 20070501
  5. PERCOCET [Suspect]
     Indication: BACK PAIN
     Dosage: UNK, UNK
     Route: 048
     Dates: start: 20070501, end: 20070601
  6. PERCOCET [Suspect]
     Dosage: UNK, UNK
     Route: 048
     Dates: start: 20070601
  7. OXYCODONE HCL [Suspect]
     Indication: BACK PAIN
     Dosage: 10 MG, PRN
     Route: 048
     Dates: end: 20070501
  8. OXYCODONE HCL [Suspect]
     Dosage: UNK MG, UNK
     Route: 048
     Dates: start: 20070601
  9. VITAMIN CAP [Concomitant]
     Dosage: UNK, UNK
     Route: 048

REACTIONS (5)
  - ABDOMINAL DISTENSION [None]
  - CONSTIPATION [None]
  - DEHYDRATION [None]
  - DYSPEPSIA [None]
  - PYREXIA [None]
